FAERS Safety Report 23625503 (Version 2)
Quarter: 2024Q2

REPORT INFORMATION
  Report Type: Spontaneous
  Country: CA (occurrence: CA)
  Receive Date: 20240313
  Receipt Date: 20240524
  Transmission Date: 20240716
  Serious: No
  Sender: FDA-Public Use
  Company Number: CA-BECTON DICKINSON-CA-BD-24-000145

PATIENT

DRUGS (1)
  1. CHLORAPREP SINGLE SWABSTICK [Suspect]
     Active Substance: CHLORHEXIDINE GLUCONATE\ISOPROPYL ALCOHOL
     Indication: Product used for unknown indication
     Dosage: N/A
     Route: 065

REACTIONS (1)
  - Device physical property issue [Unknown]
